FAERS Safety Report 16112301 (Version 1)
Quarter: 2019Q1

REPORT INFORMATION
  Report Type: Spontaneous
  Country: US (occurrence: US)
  Receive Date: 20190325
  Receipt Date: 20190325
  Transmission Date: 20190418
  Serious: No
  Sender: FDA-Public Use
  Company Number: US-AKRON, INC.-2064495

PATIENT
  Sex: Female

DRUGS (1)
  1. OLOPATADINE HCL OPHTHALMIC SOLUTION [Suspect]
     Active Substance: OLOPATADINE HYDROCHLORIDE
     Route: 047

REACTIONS (1)
  - Genital burning sensation [Unknown]
